FAERS Safety Report 19480439 (Version 1)
Quarter: 2021Q3

REPORT INFORMATION
  Report Type: Spontaneous
  Country: IT (occurrence: IT)
  Receive Date: 20210701
  Receipt Date: 20210701
  Transmission Date: 20211014
  Serious: Yes (Other)
  Sender: FDA-Public Use
  Company Number: IT-LUPIN PHARMACEUTICALS INC.-2021-10677

PATIENT

DRUGS (4)
  1. DARUNAVIR [Suspect]
     Active Substance: DARUNAVIR
     Indication: COVID-19 PNEUMONIA
     Dosage: 800 MILLIGRAM
     Route: 065
     Dates: start: 2020
  2. HYDROXYCHLOROQUINE [Suspect]
     Active Substance: HYDROXYCHLOROQUINE
     Indication: COVID-19 PNEUMONIA
     Dosage: 200 MILLIGRAM
     Route: 065
     Dates: start: 2020
  3. RITONAVIR. [Suspect]
     Active Substance: RITONAVIR
     Indication: COVID-19 PNEUMONIA
     Dosage: 100 MILLIGRAM
     Route: 065
     Dates: start: 2020
  4. PIPERACILLIN AND TAZOBACTAM [Suspect]
     Active Substance: PIPERACILLIN SODIUM\TAZOBACTAM SODIUM
     Indication: COVID-19 PNEUMONIA
     Dosage: UNK
     Route: 065
     Dates: start: 2020

REACTIONS (2)
  - Off label use [Unknown]
  - Acute generalised exanthematous pustulosis [Unknown]

NARRATIVE: CASE EVENT DATE: 2020
